FAERS Safety Report 5870647-4 (Version None)
Quarter: 2008Q3

REPORT INFORMATION
  Report Type: 
  Country: None (occurrence: None)
  Receive Date: 20080904
  Receipt Date: 20080828
  Transmission Date: 20090109
  Serious: Yes (Other)
  Sender: FDA-Public Use
  Company Number: CHNY2008DE03256

PATIENT
  Sex: Female

DRUGS (2)
  1. LAMISIL [Suspect]
     Indication: TINEA PEDIS
     Dosage: UNK
     Route: 061
     Dates: start: 20080801, end: 20080801
  2. LAMISIL [Suspect]
     Route: 061

REACTIONS (6)
  - APPLICATION SITE SWELLING [None]
  - FUNGAL INFECTION [None]
  - OEDEMA [None]
  - PAIN [None]
  - SKIN BURNING SENSATION [None]
  - VENOUS INJURY [None]
